FAERS Safety Report 14321568 (Version 1)
Quarter: 2017Q4

REPORT INFORMATION
  Report Type: Spontaneous
  Country: ES (occurrence: ES)
  Receive Date: 20171223
  Receipt Date: 20171223
  Transmission Date: 20180321
  Serious: Yes (Hospitalization, Other)
  Sender: FDA-Public Use
  Company Number: ES-MYLANLABS-2017M1081786

PATIENT
  Age: 89 Year
  Sex: Female

DRUGS (7)
  1. HYDROCHLOROTHIAZIDE/VALSARTAN [Interacting]
     Active Substance: HYDROCHLOROTHIAZIDE\VALSARTAN
     Indication: HYPERTENSION
     Dosage: 160/25, 1 CP DIARIA
     Route: 048
     Dates: start: 20150908, end: 20170225
  2. LEVOTIROXINA (LEVOTHYROXINE SODIUM) [Concomitant]
     Active Substance: LEVOTHYROXINE SODIUM
     Indication: HYPOTHYROIDISM
     Dosage: 1 CP
     Route: 048
     Dates: start: 20120220
  3. FUROSEMIDE. [Suspect]
     Active Substance: FUROSEMIDE
     Indication: CARDIAC FAILURE CONGESTIVE
     Dosage: 80 MG DIA
     Route: 048
     Dates: start: 20170220, end: 20170225
  4. LEVOFLOXACINO [Concomitant]
     Active Substance: LEVOFLOXACIN
     Dosage: 500 MG, DIA
     Route: 048
     Dates: start: 20170213, end: 20170220
  5. HIDROCLOROTIAZIDA [Interacting]
     Active Substance: HYDROCHLOROTHIAZIDE
     Indication: PRODUCT USED FOR UNKNOWN INDICATION
     Dosage: 50 MG
     Route: 048
     Dates: start: 20170220, end: 20170225
  6. METAMIZOL                          /06276702/ [Concomitant]
     Active Substance: METAMIZOLE
     Indication: OSTEOARTHRITIS
     Dosage: 1-1-1
     Route: 048
     Dates: start: 20170120, end: 20170225
  7. ESPIRONOLACTONA [Interacting]
     Active Substance: SPIRONOLACTONE
     Indication: CARDIAC FAILURE CONGESTIVE
     Dosage: 1 CP
     Route: 048
     Dates: start: 20170220, end: 20170225

REACTIONS (2)
  - Acute kidney injury [Recovered/Resolved]
  - Drug interaction [None]

NARRATIVE: CASE EVENT DATE: 20170225
